FAERS Safety Report 13313137 (Version 4)
Quarter: 2017Q1

REPORT INFORMATION
  Report Type: Spontaneous
  Country: US (occurrence: US)
  Receive Date: 20170309
  Receipt Date: 20170322
  Transmission Date: 20170428
  Serious: Yes (Death)
  Sender: FDA-Public Use
  Company Number: US-VIFOR (INTERNATIONAL) INC.-VIT-2017-02383

PATIENT
  Age: 85 Year
  Sex: Male

DRUGS (18)
  1. STOOL SOFTENER (DOCUSATE) [Concomitant]
     Active Substance: DOCUSATE
  2. PANTOPRAZOLE SODIUM SESQUIHYDRATE [Concomitant]
     Active Substance: PANTOPRAZOLE SODIUM
  3. MECLOZINE HYDROCHLORIDE [Concomitant]
     Active Substance: MECLOZINE DIHYDROCHLORIDE
  4. ARANESP [Concomitant]
     Active Substance: DARBEPOETIN ALFA
  5. SENSIPAR [Concomitant]
     Active Substance: CINACALCET HYDROCHLORIDE
  6. PARACETAMOL [Concomitant]
     Active Substance: ACETAMINOPHEN
  7. TYLENOL [Concomitant]
     Active Substance: ACETAMINOPHEN
  8. PROCRIT [Concomitant]
     Active Substance: ERYTHROPOIETIN
  9. MEMANTINE HYDROCHLORIDE. [Concomitant]
     Active Substance: MEMANTINE HYDROCHLORIDE
  10. DONEPEZIL HYDROCHLORIDE. [Concomitant]
     Active Substance: DONEPEZIL HYDROCHLORIDE
  11. SODIUM BICARBONATE. [Concomitant]
     Active Substance: SODIUM BICARBONATE
  12. RAPAFLO [Concomitant]
     Active Substance: SILODOSIN
  13. MAGOX 400 [Concomitant]
  14. DIAZEPAM. [Concomitant]
     Active Substance: DIAZEPAM
  15. ATORVASTATIN CALCIUM. [Concomitant]
     Active Substance: ATORVASTATIN CALCIUM
  16. VELTASSA [Suspect]
     Active Substance: PATIROMER
     Indication: HYPERKALAEMIA
     Route: 048
     Dates: start: 20161216, end: 201702
  17. MEGESTROL ACETATE. [Concomitant]
     Active Substance: MEGESTROL ACETATE
  18. AMLODIPINE BESILATE [Concomitant]
     Active Substance: AMLODIPINE BESYLATE

REACTIONS (1)
  - Death [Fatal]

NARRATIVE: CASE EVENT DATE: 20170228
